FAERS Safety Report 14969283 (Version 2)
Quarter: 2018Q3

REPORT INFORMATION
  Report Type: Report from Study
  Country: US (occurrence: US)
  Receive Date: 20180604
  Receipt Date: 20180719
  Transmission Date: 20181010
  Serious: Yes (Life-Threatening, Other)
  Sender: FDA-Public Use
  Company Number: US-IPSEN BIOPHARMACEUTICALS, INC.-2018-07657

PATIENT
  Age: 5 Year
  Sex: Female
  Weight: 13.5 kg

DRUGS (2)
  1. INCRELEX [Suspect]
     Active Substance: MECASERMIN
     Indication: BODY HEIGHT BELOW NORMAL
     Dosage: 1 UG/DAY OR 0.05 UG/KG/DAY
     Route: 058
     Dates: start: 20131208, end: 20180405
  2. SOMATROPIN NOS [Suspect]
     Active Substance: SOMATROPIN
     Indication: PRODUCT USED FOR UNKNOWN INDICATION
     Dosage: 0.48 MG/KG/WEEK
     Route: 065
     Dates: start: 201312, end: 201610

REACTIONS (3)
  - Sleep apnoea syndrome [Not Recovered/Not Resolved]
  - Underdose [Unknown]
  - Tonsillar hypertrophy [Not Recovered/Not Resolved]

NARRATIVE: CASE EVENT DATE: 201803
